FAERS Safety Report 6573320-2 (Version None)
Quarter: 2010Q1

REPORT INFORMATION
  Report Type: 
  Country: None (occurrence: None)
  Receive Date: 20100208
  Receipt Date: 20100129
  Transmission Date: 20100710
  Serious: Yes (Hospitalization)
  Sender: FDA-Public Use
  Company Number: CA-PFIZER INC-2006118433

PATIENT
  Age: 49 Year
  Sex: Female
  Weight: 88.5 kg

DRUGS (12)
  1. SUNITINIB MALATE [Suspect]
     Indication: RENAL CELL CARCINOMA
     Dosage: 37.5 MG, 1X/DAY
     Route: 048
     Dates: start: 20060601
  2. SENOKOT [Concomitant]
     Route: 048
     Dates: start: 20040101
  3. DOMPERIDONE [Concomitant]
     Route: 048
     Dates: start: 20040101
  4. MORPHINE [Concomitant]
     Route: 048
     Dates: start: 20040101
  5. COLACE [Concomitant]
     Route: 048
     Dates: start: 20040101
  6. STATEX [Concomitant]
     Route: 048
     Dates: start: 20060101
  7. PROCHLORPERAZINE [Concomitant]
     Route: 048
     Dates: start: 20060101
  8. ELTROXIN [Concomitant]
     Route: 048
     Dates: start: 20060101
  9. PANTOPRAZOLE [Concomitant]
     Route: 048
     Dates: start: 20060101
  10. FEVERFEW [Concomitant]
     Route: 048
     Dates: start: 20050301
  11. PREDNISONE [Concomitant]
     Route: 048
     Dates: start: 20060523
  12. LOPERAMIDE [Concomitant]
     Route: 048
     Dates: start: 20060804

REACTIONS (3)
  - CHEST PAIN [None]
  - DIARRHOEA [None]
  - VOMITING [None]
